FAERS Safety Report 7551801-2 (Version None)
Quarter: 2011Q2

REPORT INFORMATION
  Report Type: 
  Country: None (occurrence: None)
  Receive Date: 20110616
  Receipt Date: 20110606
  Transmission Date: 20111010
  Serious: Yes (Other)
  Sender: FDA-Public Use
  Company Number: US-BAYER-201041837NA

PATIENT
  Sex: Female
  Weight: 68 kg

DRUGS (26)
  1. HEPARIN [Concomitant]
     Dosage: UNK
     Route: 042
     Dates: start: 20031205
  2. LEVOPHED [Concomitant]
     Dosage: UNK
     Dates: start: 20031205
  3. ALBUMIN (HUMAN) [Concomitant]
     Dosage: 25 G, UNK
     Dates: start: 20031205
  4. TRASYLOL [Suspect]
     Indication: CARDIOPULMONARY BYPASS
     Dosage: ILLEGIBLE BOLUS DOSE FOLLOWED BY 50ML/HR INFUSION, 200ML PRIME.
     Route: 042
     Dates: start: 20031205, end: 20031205
  5. VERSED [Concomitant]
     Dosage: UNK
     Dates: start: 20031205
  6. FORANE [Concomitant]
     Dosage: UNK
     Dates: start: 20031205
  7. TRASYLOL [Suspect]
     Indication: MITRAL VALVE REPAIR
  8. TRASYLOL [Suspect]
     Indication: AORTIC VALVE REPLACEMENT
  9. PROPOFOL [Concomitant]
     Dosage: UNK
     Dates: start: 20031205
  10. ACETYLSALICYLIC ACID SRT [Concomitant]
     Dosage: 325 MG, QD
     Route: 048
  11. MAXZIDE [Concomitant]
  12. IMIPRAMINE [Concomitant]
  13. SPIRONOLACTONE [Concomitant]
  14. TRASYLOL [Suspect]
     Indication: CORONARY ARTERY BYPASS
  15. ACE INHIBITOR NOS [Concomitant]
  16. NITROGLYCERIN [Concomitant]
     Dosage: UNK
     Dates: start: 20031205
  17. VANCOMYCIN [Concomitant]
     Dosage: UNK
     Dates: start: 20031205
  18. DOBUTAMINE HYDROCHLORIDE [Concomitant]
     Dosage: UNK
     Dates: start: 20031205
  19. CAPTOPRIL [Concomitant]
     Dosage: 6.25 MG, TID
     Route: 048
  20. LEVAQUIN [Concomitant]
  21. FENTANYL-100 [Concomitant]
     Dosage: UNK
     Dates: start: 20031205
  22. SUFENTA PRESERVATIVE FREE [Concomitant]
     Dosage: UNK
     Dates: start: 20031205
  23. PAPAVERINE [PAPAVERINE] [Concomitant]
     Dosage: UNK
     Dates: start: 20031205
  24. TOPROL-XL [Concomitant]
     Dosage: 25 MG, UNK
     Route: 048
  25. LASIX [Concomitant]
     Dosage: 20 MG, QD
     Route: 048
  26. PROTAMINE SULFATE [Concomitant]
     Dosage: UNK
     Route: 042
     Dates: start: 20031205

REACTIONS (9)
  - RENAL IMPAIRMENT [None]
  - STRESS [None]
  - PAIN [None]
  - RENAL FAILURE [None]
  - EMOTIONAL DISTRESS [None]
  - ANXIETY [None]
  - UNEVALUABLE EVENT [None]
  - RENAL INJURY [None]
  - FEAR [None]
